FAERS Safety Report 13266735 (Version 1)
Quarter: 2017Q1

REPORT INFORMATION
  Report Type: Spontaneous
  Country: JP (occurrence: JP)
  Receive Date: 20170224
  Receipt Date: 20170224
  Transmission Date: 20170428
  Serious: Yes (Hospitalization)
  Sender: FDA-Public Use
  Company Number: JP-ROCHE-1888269

PATIENT
  Age: 68 Year
  Sex: Female
  Weight: 64 kg

DRUGS (9)
  1. TAKEPRON [Concomitant]
     Active Substance: LANSOPRAZOLE
     Route: 048
  2. HERCEPTIN [Suspect]
     Active Substance: TRASTUZUMAB
     Indication: BREAST CANCER
     Route: 041
     Dates: start: 20160216, end: 20170117
  3. ALESION [Concomitant]
     Active Substance: EPINASTINE HYDROCHLORIDE
     Route: 048
  4. CELESTAMINE (JAPAN) [Concomitant]
     Active Substance: BETAMETHASONE\DEXCHLORPHENIRAMINE MALEATE
     Dosage: DOSAGE IS UNCERTAIN.
     Route: 048
  5. ZYLORIC [Concomitant]
     Active Substance: ALLOPURINOL
     Route: 048
  6. SOLANAX [Concomitant]
     Active Substance: ALPRAZOLAM
     Route: 048
  7. MOBIC [Concomitant]
     Active Substance: MELOXICAM
     Route: 048
  8. SELBEX [Concomitant]
     Active Substance: TEPRENONE
     Route: 048
  9. THEO-DUR [Concomitant]
     Active Substance: THEOPHYLLINE ANHYDROUS
     Route: 048

REACTIONS (2)
  - Interstitial lung disease [Unknown]
  - Eosinophilic pneumonia [Unknown]

NARRATIVE: CASE EVENT DATE: 20170127
